FAERS Safety Report 6262795-4 (Version None)
Quarter: 2009Q3

REPORT INFORMATION
  Report Type: 
  Country: None (occurrence: None)
  Receive Date: 20090708
  Receipt Date: 20090626
  Transmission Date: 20100115
  Serious: Yes (Hospitalization)
  Sender: FDA-Public Use
  Company Number: 8047034

PATIENT
  Age: 65 Year
  Sex: Female
  Weight: 70.3 kg

DRUGS (4)
  1. CIMZIA [Suspect]
     Indication: CROHN'S DISEASE
     Dosage: 400 MG SC
     Route: 058
     Dates: start: 20090326
  2. OMEPRAZOLE [Concomitant]
  3. PREDNISONE TAB [Concomitant]
  4. AZATHIOPRINE [Concomitant]

REACTIONS (3)
  - INFLUENZA [None]
  - VASCULITIS [None]
  - WOUND NECROSIS [None]
